FAERS Safety Report 7305535-X (Version None)
Quarter: 2011Q1

REPORT INFORMATION
  Report Type: 
  Country: None (occurrence: None)
  Receive Date: 20110222
  Receipt Date: 20110217
  Transmission Date: 20110831
  Serious: Yes (Other)
  Sender: FDA-Public Use
  Company Number: IT-SANOFI-AVENTIS-2011SA010048

PATIENT
  Sex: Female

DRUGS (8)
  1. XANAX [Concomitant]
     Route: 065
  2. LOORTAN [Concomitant]
     Route: 065
  3. ASCRIPTIN [Concomitant]
     Route: 065
  4. HMG COA REDUCTASE INHIBITORS [Concomitant]
     Route: 065
  5. MULTAQ [Suspect]
     Indication: ATRIAL FIBRILLATION
     Route: 048
     Dates: start: 20101101, end: 20110201
  6. LANSOPRAZOLE [Concomitant]
     Route: 065
  7. LOPRESSOR [Concomitant]
     Route: 065
  8. ALMARYTM [Concomitant]
     Indication: ATRIAL FIBRILLATION
     Route: 065
     Dates: end: 20101101

REACTIONS (7)
  - PRESYNCOPE [None]
  - ABDOMINAL PAIN [None]
  - NAUSEA [None]
  - DYSGEUSIA [None]
  - FATIGUE [None]
  - DYSPEPSIA [None]
  - PANIC ATTACK [None]
